FAERS Safety Report 5874492-5 (Version None)
Quarter: 2008Q3

REPORT INFORMATION
  Report Type: 
  Country: None (occurrence: None)
  Receive Date: 20080909
  Receipt Date: 20080828
  Transmission Date: 20090109
  Serious: Yes (Other)
  Sender: FDA-Public Use
  Company Number: PHHY2008BR19837

PATIENT
  Age: 36 Year
  Sex: Female

DRUGS (2)
  1. DIOVAN HCT [Suspect]
     Indication: HYPERTENSION
     Dosage: 160/12.5 MG DAILY
     Route: 048
     Dates: start: 20050101, end: 20080809
  2. DIOVAN HCT [Suspect]
     Dosage: 80 MG VALSARTAN/12.5 MG HCT
     Route: 048
     Dates: start: 20080829

REACTIONS (3)
  - ARRHYTHMIA [None]
  - BLOOD PRESSURE DECREASED [None]
  - FATIGUE [None]
